FAERS Safety Report 19144695 (Version 1)
Quarter: 2021Q2

REPORT INFORMATION
  Report Type: Report from Study
  Country: None (occurrence: US)
  Receive Date: 20210416
  Receipt Date: 20210416
  Transmission Date: 20210717
  Serious: Yes (Other)
  Sender: FDA-Public Use
  Company Number: US-ABBVIE-21K-163-3855017-00

PATIENT
  Sex: Female

DRUGS (2)
  1. HUMIRA [Suspect]
     Active Substance: ADALIMUMAB
     Indication: HIDRADENITIS
     Route: 058
  2. HUMIRA [Suspect]
     Active Substance: ADALIMUMAB
     Indication: CROHN^S DISEASE

REACTIONS (5)
  - Fibromyalgia [Unknown]
  - Breast cyst [Not Recovered/Not Resolved]
  - Rheumatoid arthritis [Unknown]
  - Panic attack [Recovered/Resolved]
  - Optic nerve neoplasm [Not Recovered/Not Resolved]
